FAERS Safety Report 14765601 (Version 2)
Quarter: 2018Q2

REPORT INFORMATION
  Report Type: Spontaneous
  Country: US (occurrence: US)
  Receive Date: 20180416
  Receipt Date: 20180420
  Transmission Date: 20180711
  Serious: No
  Sender: FDA-Public Use
  Company Number: US-009507513-1804USA003826

PATIENT

DRUGS (1)
  1. BRIDION [Suspect]
     Active Substance: SUGAMMADEX
     Dosage: STRENGTH: 100 MG/ML 2ML 1 VIAL

REACTIONS (3)
  - Poor quality drug administered [Unknown]
  - Product container issue [Unknown]
  - No adverse event [Unknown]
